FAERS Safety Report 7599975-1 (Version None)
Quarter: 2011Q3

REPORT INFORMATION
  Report Type: 
  Country: None (occurrence: None)
  Receive Date: 20110711
  Receipt Date: 20110706
  Transmission Date: 20111222
  Serious: No
  Sender: FDA-Public Use
  Company Number: US-PFIZER INC-2011130364

PATIENT
  Sex: Female
  Weight: 62.585 kg

DRUGS (2)
  1. PREMARIN [Suspect]
     Indication: MENOPAUSAL SYMPTOMS
     Dosage: UNK, 2X/WEEK
     Dates: start: 20090713
  2. PREMARIN [Suspect]
     Indication: VAGINAL INFECTION

REACTIONS (1)
  - ALOPECIA [None]
